FAERS Safety Report 18841297 (Version 2)
Quarter: 2021Q1

REPORT INFORMATION
  Report Type: Report from Study
  Country: IT (occurrence: IT)
  Receive Date: 20210204
  Receipt Date: 20210211
  Transmission Date: 20210419
  Serious: Yes (Other)
  Sender: FDA-Public Use
  Company Number: IT-ROCHE-2762663

PATIENT
  Age: 38 Year
  Sex: Female
  Weight: 73 kg

DRUGS (3)
  1. VEMURAFENIB. [Suspect]
     Active Substance: VEMURAFENIB
     Indication: MALIGNANT MELANOMA
     Dosage: FOUR 240 MG (960 MG) TABLETS TWICE DAILY FOR 28 CONSECUTIVE DAYS. THE FIRST DOSE SHOULD BE TAKEN IN
     Route: 048
     Dates: start: 20210119, end: 20210128
  2. COBIMETINIB. [Suspect]
     Active Substance: COBIMETINIB
     Indication: MALIGNANT MELANOMA
     Dosage: TAKEN ON A 28?DAY CYCLE. EACH DOSE CONSISTS OF THREE 20 MG TABLETS (60 MG) AND SHOULD BE TAKEN ORALL
     Route: 048
     Dates: start: 20210119, end: 20210128
  3. PANTOPRAZOLE [Concomitant]
     Active Substance: PANTOPRAZOLE
     Indication: DYSPEPSIA
     Dates: start: 20200701

REACTIONS (1)
  - Rash maculo-papular [Not Recovered/Not Resolved]

NARRATIVE: CASE EVENT DATE: 20210129
